FAERS Safety Report 20279585 (Version 1)
Quarter: 2022Q1

REPORT INFORMATION
  Report Type: Spontaneous
  Country: DE (occurrence: DE)
  Receive Date: 20220103
  Receipt Date: 20220103
  Transmission Date: 20220423
  Serious: Yes (Hospitalization)
  Sender: FDA-Public Use
  Company Number: DE-ADRED-07423-01

PATIENT
  Age: 64 Year
  Sex: Female
  Weight: 63 kg

DRUGS (13)
  1. CARVEDILOL [Suspect]
     Active Substance: CARVEDILOL
     Indication: Product used for unknown indication
     Dosage: 25 MILLIGRAM, BID (25 MG, 1-0-1-0, TABLETTEN)
     Route: 048
  2. INSULIN GLARGINE [Suspect]
     Active Substance: INSULIN GLARGINE
     Indication: Product used for unknown indication
     Dosage: 300 INTERNATIONAL UNIT, QD (300 IU, 0-0-0.5, INJECTION/INFUSION SOLUTION)
     Route: 058
  3. INSULIN LISPRO [Suspect]
     Active Substance: INSULIN LISPRO
     Indication: Product used for unknown indication
     Dosage: 300 INTERNATIONAL UNIT, TID (300 IU, 1-1-1-0, INJECTION/INFUSION SOLUTION)
     Route: 058
  4. EDOXABAN [Concomitant]
     Active Substance: EDOXABAN
     Dosage: 60 MILLIGRAM, QD (60 MG, 0-0-1-0, TABLETTEN)
     Route: 048
  5. ALLOPURINOL [Concomitant]
     Active Substance: ALLOPURINOL
     Dosage: 300 MILLIGRAM, QD (300 MG, 0.5-0-0-0, TABLETTEN)
     Route: 048
  6. LEVOTHYROXINUM NATRICUM [Concomitant]
     Dosage: 0.125 MILLIGRAM, QD (0.125 MG, 1-0-0-0, TABLETTEN)
     Route: 048
  7. MOXONIDINA [Concomitant]
     Dosage: 0.2 MILLIGRAM, BID (0.2 MG, 1-0-0-1, TABLETTEN)
     Route: 048
  8. ATORVASTATIN [Concomitant]
     Active Substance: ATORVASTATIN
     Dosage: 20 MILLIGRAM, QD (20 MG, 0-0-1-0, TABLETTEN)
     Route: 048
  9. AMITRIPTYLINE [Concomitant]
     Active Substance: AMITRIPTYLINE
     Dosage: 25 MILLIGRAM, QD (25 MG, 0-0-2-0, TABLETTEN)
     Route: 048
  10. DIGITOXIN [Concomitant]
     Active Substance: DIGITOXIN
     Dosage: 0.07 MILLIGRAM, QD (0.07 MG, 0-1-0-0, TABLETTEN)
     Route: 048
  11. LERCANIDIPINE [Concomitant]
     Active Substance: LERCANIDIPINE
     Dosage: 10 MILLIGRAM, BID (10 MG, 0-1-0-1, TABLETTEN)
     Route: 048
  12. ASPIRIN [Concomitant]
     Active Substance: ASPIRIN
     Dosage: 100 MILLIGRAM, QD (100 MG, 0-1-0-0, TABLETTEN)
     Route: 048
  13. CANDESARTAN [Concomitant]
     Active Substance: CANDESARTAN
     Dosage: 32 MILLIGRAM, BID (32 MG, 0.5-0-0.5-0, TABLETTEN)
     Route: 048

REACTIONS (4)
  - Therapeutic drug monitoring analysis not performed [Unknown]
  - Peripheral coldness [Unknown]
  - Pain [Unknown]
  - Medication error [Unknown]
